FAERS Safety Report 18589980 (Version 1)
Quarter: 2020Q4

REPORT INFORMATION
  Report Type: Spontaneous
  Country: US (occurrence: US)
  Receive Date: 20201027
  Receipt Date: 20201027
  Transmission Date: 20210114
  Serious: Yes (Death)
  Sender: FDA-Public Use
  Company Number: None

PATIENT
  Age: 8 Decade
  Sex: Male

DRUGS (2)
  1. DARUNAVIR-RITONAVIR [Suspect]
     Active Substance: DARUNAVIR\RITONAVIR
     Indication: COVID-19
     Dates: start: 2020
  2. HYDROXYCHLOROQUINE [Suspect]
     Active Substance: HYDROXYCHLOROQUINE
     Indication: COVID-19
     Dates: start: 2020

REACTIONS (4)
  - Cerebrovascular disorder [None]
  - Embolism [None]
  - Product use in unapproved indication [None]
  - Coagulopathy [None]
